FAERS Safety Report 7908036-0 (Version None)
Quarter: 2011Q4

REPORT INFORMATION
  Report Type: 
  Country: None (occurrence: None)
  Receive Date: 20111110
  Receipt Date: 20111103
  Transmission Date: 20120403
  Serious: Yes (Other)
  Sender: FDA-Public Use
  Company Number: US-AMGEN-USASP2011057447

PATIENT
  Sex: Female

DRUGS (3)
  1. CORTISONE ACETATE [Concomitant]
     Dosage: UNK
  2. ENBREL [Suspect]
     Dosage: 25 MG, 2 TIMES/WK
     Route: 064
     Dates: start: 20000601
  3. PREDNISONE TAB [Concomitant]
     Dosage: 5 MG, UNK
     Route: 064

REACTIONS (1)
  - HYPOTHERMIA NEONATAL [None]
